FAERS Safety Report 24901177 (Version 2)
Quarter: 2025Q1

REPORT INFORMATION
  Report Type: Spontaneous
  Country: JP (occurrence: JP)
  Receive Date: 20250129
  Receipt Date: 20250328
  Transmission Date: 20250408
  Serious: Yes (Death, Other)
  Sender: EISAI
  Company Number: JP-Eisai-202413737_LEN-EC_P_1

PATIENT
  Age: 46 Year
  Sex: Female

DRUGS (2)
  1. LENVIMA [Suspect]
     Active Substance: LENVATINIB
     Indication: Endometrial cancer
  2. KEYTRUDA [Concomitant]
     Active Substance: PEMBROLIZUMAB
     Indication: Endometrial cancer

REACTIONS (4)
  - Malignant neoplasm progression [Fatal]
  - Hepatitis [Unknown]
  - Cholangitis [Unknown]
  - Rash [Recovered/Resolved]
